FAERS Safety Report 19213195 (Version 1)
Quarter: 2021Q2

REPORT INFORMATION
  Report Type: Spontaneous
  Country: CN (occurrence: CN)
  Receive Date: 20210504
  Receipt Date: 20210504
  Transmission Date: 20210717
  Serious: Yes (Hospitalization)
  Sender: FDA-Public Use
  Company Number: CN-JNJFOC-20210456847

PATIENT
  Age: 74 Year
  Sex: Female
  Weight: 62 kg

DRUGS (6)
  1. VFEND [Interacting]
     Active Substance: VORICONAZOLE
     Indication: PNEUMONIA
     Dosage: 0.2 G, QD
     Route: 041
     Dates: start: 20210418, end: 20210422
  2. XARELTO [Interacting]
     Active Substance: RIVAROXABAN
     Indication: ANTICOAGULANT THERAPY
     Route: 048
  3. IMIPENEM AND CILASTATIN [Concomitant]
     Active Substance: CILASTATIN SODIUM\IMIPENEM
     Indication: ANTI-INFECTIVE THERAPY
     Dosage: 250 MG, Q8HR
     Route: 041
     Dates: start: 20210410, end: 20210417
  4. SULPERAZONE [Suspect]
     Active Substance: CEFOPERAZONE SODIUM\SULBACTAM SODIUM
     Indication: PNEUMONIA
     Dosage: 3 G, TID
     Route: 041
     Dates: start: 20210417, end: 20210422
  5. XARELTO [Suspect]
     Active Substance: RIVAROXABAN
     Indication: ATRIAL FIBRILLATION
     Dosage: 20 MG, QD
     Route: 048
     Dates: end: 20210422
  6. VFEND [Interacting]
     Active Substance: VORICONAZOLE
     Indication: PNEUMONIA
     Dosage: 400 MG, QD
     Route: 041
     Dates: start: 20210417, end: 20210417

REACTIONS (11)
  - Labelled drug-drug interaction medication error [Unknown]
  - Occult blood positive [Unknown]
  - Prothrombin time prolonged [Recovering/Resolving]
  - Dyspnoea [Unknown]
  - Poor quality sleep [Unknown]
  - Coagulopathy [Recovering/Resolving]
  - Urinary occult blood positive [Unknown]
  - Cough [Unknown]
  - Protein urine present [Unknown]
  - Pyrexia [Recovered/Resolved]
  - Activated partial thromboplastin time prolonged [Recovering/Resolving]

NARRATIVE: CASE EVENT DATE: 20210401
